FAERS Safety Report 6679766-6 (Version None)
Quarter: 2010Q2

REPORT INFORMATION
  Report Type: 
  Country: None (occurrence: None)
  Receive Date: 20100413
  Receipt Date: 20090923
  Transmission Date: 20101027
  Serious: No
  Sender: FDA-Public Use
  Company Number: US-ASTRAZENECA-2009SE14959

PATIENT
  Sex: Female

DRUGS (3)
  1. TENORMIN [Suspect]
     Route: 048
  2. VALSARTAN [Concomitant]
  3. DIOVAN HCT [Concomitant]

REACTIONS (1)
  - HYPERTENSION [None]
